FAERS Safety Report 8518846-7 (Version None)
Quarter: 2012Q3

REPORT INFORMATION
  Report Type: 
  Country: None (occurrence: None)
  Receive Date: 20120718
  Receipt Date: 20120713
  Transmission Date: 20120928
  Serious: Yes (Hospitalization, Other)
  Sender: FDA-Public Use
  Company Number: PHHY2012JP057772

PATIENT
  Sex: Female
  Weight: 44 kg

DRUGS (5)
  1. ZOVIRAX [Suspect]
     Route: 048
  2. GILENYA [Suspect]
     Dosage: 0.5 MG, DAILY
     Route: 048
     Dates: start: 20120117, end: 20120702
  3. ACYCLOVIR [Suspect]
     Dosage: UNK UKN, UNK
     Route: 048
     Dates: start: 20120629
  4. METHYLPREDNISOLONE SODIUM SUCCINATE [Concomitant]
     Indication: MULTIPLE SCLEROSIS
     Dosage: 1000 MG, UNK
     Dates: start: 20111020, end: 20111024
  5. IMURAN [Concomitant]
     Indication: MULTIPLE SCLEROSIS
     Dosage: 150 MG, UNK
     Route: 048
     Dates: start: 20111025, end: 20120119

REACTIONS (5)
  - HERPES ZOSTER [None]
  - GRANULOCYTE COUNT DECREASED [None]
  - WHITE BLOOD CELL COUNT DECREASED [None]
  - GENERAL PHYSICAL CONDITION ABNORMAL [None]
  - LYMPHOCYTE COUNT DECREASED [None]
